FAERS Safety Report 16264017 (Version 1)
Quarter: 2019Q2

REPORT INFORMATION
  Report Type: Spontaneous
  Country: US (occurrence: US)
  Receive Date: 20190327
  Receipt Date: 20190327
  Transmission Date: 20190711
  Serious: Yes (Hospitalization)
  Sender: FDA-Public Use
  Company Number: None

PATIENT
  Age: 51 Year
  Sex: Female
  Weight: 108.1 kg

DRUGS (1)
  1. YESCARTA [Suspect]
     Active Substance: AXICABTAGENE CILOLEUCEL

REACTIONS (7)
  - Pyrexia [None]
  - Dysphagia [None]
  - CREST syndrome [None]
  - Hypotension [None]
  - Confusional state [None]
  - Oxygen saturation decreased [None]
  - Myoclonus [None]

NARRATIVE: CASE EVENT DATE: 20190112
